FAERS Safety Report 5806469-X (Version None)
Quarter: 2008Q3

REPORT INFORMATION
  Report Type: 
  Country: None (occurrence: None)
  Receive Date: 20080710
  Receipt Date: 20070516
  Transmission Date: 20090109
  Serious: No
  Sender: FDA-Public Use
  Company Number: US-BAYER-US-2007-017781

PATIENT

DRUGS (1)
  1. CAMPATH [Suspect]
     Dates: start: 20070101

REACTIONS (2)
  - BLOOD CREATININE INCREASED [None]
  - LETHARGY [None]
